FAERS Safety Report 4620622-2 (Version None)
Quarter: 2005Q1

REPORT INFORMATION
  Report Type: 
  Country: None (occurrence: None)
  Receive Date: 20050324
  Receipt Date: 20050317
  Transmission Date: 20050727
  Serious: Yes (Hospitalization, Other)
  Sender: FDA-Public Use
  Company Number: 2005035904

PATIENT
  Age: 81 Year
  Sex: Female
  Weight: 58.9676 kg

DRUGS (12)
  1. NORVASC [Suspect]
     Indication: HYPERTENSION
     Dosage: 10 MG (10 MG, 1 IN 1 D), ORAL
     Route: 048
  2. ATORVASTATIN (ATORVASTATIN) [Concomitant]
  3. CELECOXIB (CELECOXIB) [Concomitant]
  4. TORSEMIDE [Concomitant]
  5. ESCITALOPRAM OXALATE [Concomitant]
  6. RAMIPRIL [Concomitant]
  7. ESTRADIOL [Concomitant]
  8. POTASSIUM ACETATE [Concomitant]
  9. KAPSOVIT (ASCORBIC ACID, ERGOCALCIFEROL, NICOTINAMIDE, RETINOL, RIBFLA [Concomitant]
  10. CLOPIDOGREL BISULFATE [Concomitant]
  11. LEVOTHYROXINE SODIUM [Concomitant]
  12. ACETYCALICYLIC ACID (ACETYLSALICYLIC ACID) [Concomitant]

REACTIONS (4)
  - BLOOD PRESSURE INCREASED [None]
  - BODY HEIGHT DECREASED [None]
  - CEREBRAL THROMBOSIS [None]
  - DRUG INEFFECTIVE [None]
